FAERS Safety Report 6971783-1 (Version None)
Quarter: 2010Q3

REPORT INFORMATION
  Report Type: 
  Country: None (occurrence: None)
  Receive Date: 20100903
  Receipt Date: 20100824
  Transmission Date: 20110219
  Serious: Yes (Hospitalization)
  Sender: FDA-Public Use
  Company Number: 2010SP045764

PATIENT
  Sex: Female
  Weight: 58 kg

DRUGS (1)
  1. NUVARING [Suspect]
     Indication: CONTRACEPTION
     Dosage: ; VAG
     Route: 067
     Dates: start: 20090301, end: 20090301

REACTIONS (2)
  - HAEMOGLOBIN DECREASED [None]
  - VAGINAL HAEMORRHAGE [None]
